FAERS Safety Report 7580598-5 (Version None)
Quarter: 2011Q2

REPORT INFORMATION
  Report Type: 
  Country: None (occurrence: None)
  Receive Date: 20110629
  Receipt Date: 20110627
  Transmission Date: 20111010
  Serious: Yes (Hospitalization)
  Sender: FDA-Public Use
  Company Number: B0728703A

PATIENT
  Sex: Female

DRUGS (3)
  1. ABACAVIR SULFATE AND LAMIVUDINE [Concomitant]
     Indication: HIV INFECTION
     Route: 065
     Dates: start: 20090629
  2. TELZIR [Suspect]
     Indication: HIV INFECTION
     Dosage: 1400MG PER DAY
     Route: 048
     Dates: start: 20090306, end: 20110508
  3. NORVIR [Suspect]
     Indication: HIV INFECTION
     Dosage: 100MG TWICE PER DAY
     Route: 048
     Dates: start: 20090306, end: 20110508

REACTIONS (8)
  - POLYURIA [None]
  - HYPERGLYCAEMIA [None]
  - HYPOPHOSPHATAEMIA [None]
  - POLYDIPSIA [None]
  - ASTHENIA [None]
  - HYPERCALCAEMIA [None]
  - WEIGHT DECREASED [None]
  - RENAL FAILURE [None]
